FAERS Safety Report 5831626-6 (Version None)
Quarter: 2008Q3

REPORT INFORMATION
  Report Type: 
  Country: None (occurrence: None)
  Receive Date: 20080730
  Receipt Date: 20080716
  Transmission Date: 20090109
  Serious: Yes (Death)
  Sender: FDA-Public Use
  Company Number: 2008AL008582

PATIENT
  Age: 85 Year
  Sex: Female

DRUGS (1)
  1. DIGOXIN [Suspect]
     Dosage: 0.25MG DAILY PO
     Route: 048

REACTIONS (2)
  - ADVERSE DRUG REACTION [None]
  - CARDIOACTIVE DRUG LEVEL ABOVE THERAPEUTIC [None]
